FAERS Safety Report 10250153 (Version 1)
Quarter: 2014Q2

REPORT INFORMATION
  Report Type: Spontaneous
  Country: US (occurrence: US)
  Receive Date: 20140620
  Receipt Date: 20140620
  Transmission Date: 20141212
  Serious: Yes (Death)
  Sender: FDA-Public Use
  Company Number: US-BRISTOL-MYERS SQUIBB COMPANY-20698775

PATIENT
  Sex: Female

DRUGS (1)
  1. ELIQUIS [Suspect]
     Dates: start: 201403

REACTIONS (1)
  - Haemorrhage intracranial [Fatal]
